FAERS Safety Report 7008048-8 (Version None)
Quarter: 2010Q3

REPORT INFORMATION
  Report Type: 
  Country: None (occurrence: None)
  Receive Date: 20100922
  Receipt Date: 20100916
  Transmission Date: 20110219
  Serious: Yes (Hospitalization)
  Sender: FDA-Public Use
  Company Number: JP-ABBOTT-09P-087-0500621-00

PATIENT
  Sex: Male

DRUGS (11)
  1. KALETRA [Suspect]
     Indication: HIV INFECTION
     Dosage: 4 TABLETS, 800/200MG DAILY
     Route: 048
     Dates: start: 20090106, end: 20090122
  2. RIFABUTIN [Suspect]
     Indication: DISSEMINATED TUBERCULOSIS
     Dosage: 300MG DAILY
     Route: 048
     Dates: start: 20090106, end: 20090122
  3. RIFABUTIN [Suspect]
     Dates: start: 20090131, end: 20090330
  4. LAMIVUDINE + ZIDOVUDINE [Suspect]
     Indication: HIV INFECTION
     Dosage: 2 TABS DAILY
     Route: 048
     Dates: start: 20090106, end: 20090122
  5. ITRACONAZOLE [Concomitant]
     Indication: FUNGAL INFECTION
     Route: 048
     Dates: start: 20081119
  6. ISONIAZID [Concomitant]
     Indication: DISSEMINATED TUBERCULOSIS
     Route: 048
     Dates: start: 20081003, end: 20090122
  7. ISONIAZID [Concomitant]
     Dates: start: 20090131, end: 20090330
  8. ETHAMBUTOL HYDROCHLORIDE [Concomitant]
     Indication: DISSEMINATED TUBERCULOSIS
     Route: 048
     Dates: start: 20081003, end: 20090122
  9. ETHAMBUTOL HYDROCHLORIDE [Concomitant]
     Route: 048
     Dates: start: 20090131, end: 20090330
  10. FAMOTIDINE [Concomitant]
     Indication: PRODUCT USED FOR UNKNOWN INDICATION
     Route: 048
     Dates: start: 20081015
  11. METOCLOPRAMIDE [Concomitant]
     Indication: PRODUCT USED FOR UNKNOWN INDICATION
     Dates: start: 20090107

REACTIONS (3)
  - NAUSEA [None]
  - PLATELET COUNT DECREASED [None]
  - UVEITIS [None]
